FAERS Safety Report 25426201 (Version 1)
Quarter: 2025Q2

REPORT INFORMATION
  Report Type: Spontaneous
  Country: US (occurrence: US)
  Receive Date: 20250612
  Receipt Date: 20250612
  Transmission Date: 20250717
  Serious: Yes (Hospitalization, Other)
  Sender: NOVO NORDISK
  Company Number: US-NOVOPROD-1450661

PATIENT
  Sex: Female

DRUGS (2)
  1. OZEMPIC [Suspect]
     Active Substance: SEMAGLUTIDE
     Route: 058
  2. OZEMPIC [Suspect]
     Active Substance: SEMAGLUTIDE
     Indication: Weight control
     Route: 058

REACTIONS (5)
  - Cholecystitis [Recovered/Resolved]
  - Dehydration [Recovered/Resolved]
  - Impaired gastric emptying [Recovered/Resolved]
  - Product use in unapproved indication [Unknown]
  - Prescription drug used without a prescription [Unknown]
